FAERS Safety Report 15677653 (Version 2)
Quarter: 2018Q4

REPORT INFORMATION
  Report Type: Spontaneous
  Country: FI (occurrence: FI)
  Receive Date: 20181130
  Receipt Date: 20181207
  Transmission Date: 20190205
  Serious: Yes (Other)
  Sender: FDA-Public Use
  Company Number: FI-MYLANLABS-2018M1089636

PATIENT
  Age: 60 Year
  Sex: Female

DRUGS (5)
  1. MINISUN [Concomitant]
     Active Substance: CHOLECALCIFEROL
     Dosage: 20 MICROGRAM, QD
     Dates: start: 2016
  2. ROSUVASTATIN. [Concomitant]
     Active Substance: ROSUVASTATIN
     Dosage: 5 MICROGRAM, QD
     Dates: start: 2017
  3. ALVESCO [Concomitant]
     Active Substance: CICLESONIDE
     Indication: ASTHMA
     Dosage: 160 MICROGRAM, QD
     Route: 065
     Dates: start: 2013
  4. ATACAND [Concomitant]
     Active Substance: CANDESARTAN CILEXETIL
     Indication: MIGRAINE PROPHYLAXIS
     Dosage: 16 MILLIGRAM, QD
     Route: 065
     Dates: start: 2013
  5. DYMISTA [Suspect]
     Active Substance: AZELASTINE HYDROCHLORIDE\FLUTICASONE PROPIONATE
     Indication: VASOMOTOR RHINITIS
     Dosage: UNK
     Route: 045
     Dates: start: 201808, end: 201808

REACTIONS (1)
  - Arrhythmia [Recovered/Resolved]

NARRATIVE: CASE EVENT DATE: 201808
